FAERS Safety Report 24838258 (Version 2)
Quarter: 2025Q1

REPORT INFORMATION
  Report Type: Spontaneous
  Country: US (occurrence: US)
  Receive Date: 20250113
  Receipt Date: 20250123
  Transmission Date: 20250409
  Serious: Yes (Other)
  Sender: PFIZER
  Company Number: US-PFIZER INC-PV202500004803

PATIENT
  Age: 63 Year
  Sex: Female

DRUGS (1)
  1. IBRANCE [Suspect]
     Active Substance: PALBOCICLIB

REACTIONS (13)
  - Urinary retention [Unknown]
  - Fatigue [Unknown]
  - Brain fog [Unknown]
  - Vitreous floaters [Unknown]
  - Constipation [Unknown]
  - Dizziness [Unknown]
  - Retching [Not Recovered/Not Resolved]
  - Abdominal distension [Unknown]
  - Arthralgia [Unknown]
  - Dysphonia [Unknown]
  - Cough [Unknown]
  - Eye pain [Unknown]
  - Nausea [Unknown]
